FAERS Safety Report 9575256 (Version 2)
Quarter: 2013Q4

REPORT INFORMATION
  Report Type: Spontaneous
  Country: LV (occurrence: LV)
  Receive Date: 20131001
  Receipt Date: 20131031
  Transmission Date: 20140711
  Serious: Yes (Other)
  Sender: FDA-Public Use
  Company Number: LV-VIIV HEALTHCARE LIMITED-B0926324A

PATIENT
  Age: 46 Year
  Sex: Female
  Weight: 88 kg

DRUGS (4)
  1. KIVEXA [Suspect]
     Indication: HIV INFECTION
     Route: 048
     Dates: start: 20130626, end: 20130825
  2. STOCRIN [Suspect]
     Indication: HIV INFECTION
     Dosage: 600MG PER DAY
     Route: 048
     Dates: start: 20130626, end: 20130825
  3. BISEPTOL [Concomitant]
     Dosage: 480MG PER DAY
     Route: 048
     Dates: start: 20130626, end: 20130728
  4. FLUCONAZOLE [Concomitant]
     Dosage: 150MG PER DAY
     Dates: start: 20130626, end: 20130825

REACTIONS (1)
  - Alopecia totalis [Unknown]
